FAERS Safety Report 13649058 (Version 2)
Quarter: 2018Q1

REPORT INFORMATION
  Report Type: Report from Study
  Country: CA (occurrence: CA)
  Receive Date: 20170613
  Receipt Date: 20180220
  Transmission Date: 20180508
  Serious: Yes (Other)
  Sender: FDA-Public Use
  Company Number: CA-BRISTOL-MYERS SQUIBB COMPANY-BMS-2017-048996

PATIENT
  Age: 70 Year
  Sex: Female

DRUGS (1)
  1. ABATACEPT [Suspect]
     Active Substance: ABATACEPT
     Indication: RHEUMATOID ARTHRITIS
     Dosage: 125 MG, QWK
     Route: 058
     Dates: start: 20131227, end: 20180207

REACTIONS (5)
  - Device malfunction [Unknown]
  - Drug ineffective [Unknown]
  - Photosensitivity reaction [Unknown]
  - Erythema [Unknown]
  - Bone disorder [Unknown]

NARRATIVE: CASE EVENT DATE: 20170601
